FAERS Safety Report 7421429-3 (Version None)
Quarter: 2011Q2

REPORT INFORMATION
  Report Type: 
  Country: None (occurrence: None)
  Receive Date: 20110418
  Receipt Date: 20110408
  Transmission Date: 20111010
  Serious: Yes (Hospitalization)
  Sender: FDA-Public Use
  Company Number: FR-JNJFOC-20110404577

PATIENT
  Sex: Female

DRUGS (12)
  1. TRIFLUCAN [Suspect]
     Indication: PRODUCT USED FOR UNKNOWN INDICATION
     Route: 065
  2. ATACAND [Concomitant]
  3. TARDYFERON [Concomitant]
  4. STILNOX [Concomitant]
     Route: 048
  5. KARDEGIC [Concomitant]
     Route: 048
  6. DAFLON [Concomitant]
  7. ACETAMINOPHEN AND TRAMADOL HCL [Concomitant]
  8. ADVIL LIQUI-GELS [Concomitant]
  9. HALDOL [Suspect]
     Indication: CONFUSIONAL STATE
     Route: 048
  10. LOVENOX [Suspect]
     Indication: PRODUCT USED FOR UNKNOWN INDICATION
     Route: 058
  11. ATENOLOL [Concomitant]
  12. CHONDROSULF [Concomitant]

REACTIONS (1)
  - THROMBOCYTOPENIA [None]
